FAERS Safety Report 11122809 (Version 1)
Quarter: 2015Q2

REPORT INFORMATION
  Report Type: Spontaneous
  Country: US (occurrence: US)
  Receive Date: 20150519
  Receipt Date: 20150519
  Transmission Date: 20150821
  Serious: No
  Sender: FDA-Public Use
  Company Number: US-PFIZER INC-2015165265

PATIENT
  Age: 76 Year
  Sex: Female

DRUGS (2)
  1. NIFEDIPINE. [Suspect]
     Active Substance: NIFEDIPINE
     Dosage: 30 MG, UNK
  2. DIOVAN [Suspect]
     Active Substance: VALSARTAN
     Dosage: UNK

REACTIONS (3)
  - Fatigue [Unknown]
  - Blood pressure decreased [Unknown]
  - Weight decreased [Unknown]
